FAERS Safety Report 5599908-3 (Version None)
Quarter: 2007Q4

REPORT INFORMATION
  Report Type: 
  Country: None (occurrence: None)
  Receive Date: 20071226
  Receipt Date: 20071001
  Transmission Date: 20080405
  Serious: Yes (Other)
  Sender: FDA-Public Use
  Company Number: 248713

PATIENT
  Age: 31 Year
  Sex: Female

DRUGS (1)
  1. RAPTIVA [Suspect]
     Indication: PSORIASIS
     Dosage: 0.5 ML, 1/WEEK, SUBCUTANEOUS
     Route: 058
     Dates: start: 20070928

REACTIONS (3)
  - HEADACHE [None]
  - NAUSEA [None]
  - PHOTOSENSITIVITY REACTION [None]
